FAERS Safety Report 23342133 (Version 2)
Quarter: 2024Q3

REPORT INFORMATION
  Report Type: Spontaneous
  Country: US (occurrence: US)
  Receive Date: 20231227
  Receipt Date: 20240817
  Transmission Date: 20241016
  Serious: No
  Sender: SANOFI AVENTIS
  Company Number: US-SA-SAC20231223000277

PATIENT
  Age: 68 Year
  Sex: Female
  Weight: 154 kg

DRUGS (45)
  1. DUPIXENT [Suspect]
     Active Substance: DUPILUMAB
     Indication: Neurodermatitis
     Dosage: 300MG QOW
     Route: 058
     Dates: start: 20230912
  2. ZYRTEC [Concomitant]
     Active Substance: CETIRIZINE HYDROCHLORIDE
  3. ZINC SULFATE [Concomitant]
     Active Substance: ZINC SULFATE
  4. ZINC SULFATE [Concomitant]
     Active Substance: ZINC SULFATE
  5. MENATETRENONE [Concomitant]
     Active Substance: MENATETRENONE
  6. VITAMIN D3 [Concomitant]
     Active Substance: CHOLECALCIFEROL
  7. VITAMIN D3 [Concomitant]
     Active Substance: CHOLECALCIFEROL
  8. VITAMIN B6 [Concomitant]
     Active Substance: PYRIDOXINE HYDROCHLORIDE
  9. VITAMIN B6 [Concomitant]
     Active Substance: PYRIDOXINE HYDROCHLORIDE
  10. HYDROCHLOROTHIAZIDE\VALSARTAN [Concomitant]
     Active Substance: HYDROCHLOROTHIAZIDE\VALSARTAN
  11. HYDROCHLOROTHIAZIDE\VALSARTAN [Concomitant]
     Active Substance: HYDROCHLOROTHIAZIDE\VALSARTAN
  12. TYLENOL ARTHRITIS PAIN [Concomitant]
     Active Substance: ACETAMINOPHEN
  13. TYLENOL ARTHRITIS PAIN [Concomitant]
     Active Substance: ACETAMINOPHEN
  14. ROSUVASTATIN CALCIUM [Concomitant]
     Active Substance: ROSUVASTATIN CALCIUM
  15. ROSUVASTATIN CALCIUM [Concomitant]
     Active Substance: ROSUVASTATIN CALCIUM
  16. PROMETHAZINE HYDROCHLORIDE [Concomitant]
     Active Substance: PROMETHAZINE HYDROCHLORIDE
  17. PROMETHAZINE HYDROCHLORIDE [Concomitant]
     Active Substance: PROMETHAZINE HYDROCHLORIDE
  18. PRALUENT [Concomitant]
     Active Substance: ALIROCUMAB
  19. PRALUENT [Concomitant]
     Active Substance: ALIROCUMAB
  20. MODAFINIL [Concomitant]
     Active Substance: MODAFINIL
  21. MODAFINIL [Concomitant]
     Active Substance: MODAFINIL
  22. METFORMIN HYDROCHLORIDE [Concomitant]
     Active Substance: METFORMIN HYDROCHLORIDE
  23. GAS-X [Concomitant]
     Active Substance: DIMETHICONE
  24. GAS-X [Concomitant]
     Active Substance: DIMETHICONE
  25. ESOMEPRAZOLE MAGNESIUM [Concomitant]
     Active Substance: ESOMEPRAZOLE MAGNESIUM
  26. ESOMEPRAZOLE MAGNESIUM [Concomitant]
     Active Substance: ESOMEPRAZOLE MAGNESIUM
  27. DULOXETINE HYDROCHLORIDE [Concomitant]
     Active Substance: DULOXETINE HYDROCHLORIDE
  28. DULOXETINE HYDROCHLORIDE [Concomitant]
     Active Substance: DULOXETINE HYDROCHLORIDE
  29. COENZYME Q10 [Concomitant]
     Active Substance: DIETARY SUPPLEMENT\UBIDECARENONE
  30. CLONIDINE [Concomitant]
     Active Substance: CLONIDINE
     Dosage: UNK, QD
  31. CLONIDINE [Concomitant]
     Active Substance: CLONIDINE
  32. CLINDAMYCIN HYDROCHLORIDE [Concomitant]
     Active Substance: CLINDAMYCIN HYDROCHLORIDE
  33. CLINDAMYCIN HYDROCHLORIDE [Concomitant]
     Active Substance: CLINDAMYCIN HYDROCHLORIDE
  34. BETAMETHASONE DIPROPIONATE [Concomitant]
     Active Substance: BETAMETHASONE DIPROPIONATE
  35. ARMOUR THYROID [Concomitant]
     Active Substance: THYROID, PORCINE
  36. ARMOUR THYROID [Concomitant]
     Active Substance: THYROID, PORCINE
  37. RYBELSUS [Concomitant]
     Active Substance: SEMAGLUTIDE
  38. BIFIDOBACTERIUM ANIMALIS LACTIS [Concomitant]
     Active Substance: BIFIDOBACTERIUM ANIMALIS LACTIS
  39. ASPIRIN [Concomitant]
     Active Substance: ASPIRIN
  40. ASPIRIN [Concomitant]
     Active Substance: ASPIRIN
  41. VINPOCETINE [Concomitant]
     Active Substance: VINPOCETINE
  42. TORSEMIDE [Concomitant]
     Active Substance: TORSEMIDE
  43. OZEMPIC [Concomitant]
     Active Substance: SEMAGLUTIDE
  44. BETAMETHASONE DIPROPIONATE AUGMENTED [Concomitant]
     Active Substance: BETAMETHASONE DIPROPIONATE
  45. METFORMIN [Concomitant]
     Active Substance: METFORMIN HYDROCHLORIDE

REACTIONS (2)
  - Injection site pain [Unknown]
  - Inappropriate schedule of product administration [Unknown]
